FAERS Safety Report 6849243-8 (Version None)
Quarter: 2010Q3

REPORT INFORMATION
  Report Type: 
  Country: None (occurrence: None)
  Receive Date: 20100716
  Receipt Date: 20071017
  Transmission Date: 20110219
  Serious: No
  Sender: FDA-Public Use
  Company Number: US-PFIZER INC-2007080977

PATIENT
  Sex: Female
  Weight: 58.6 kg

DRUGS (13)
  1. CHANTIX [Suspect]
     Indication: SMOKING CESSATION THERAPY
     Route: 048
     Dates: start: 20070801
  2. LIPITOR [Concomitant]
  3. AMARYL [Concomitant]
  4. LOPID [Concomitant]
  5. FOLIC ACID [Concomitant]
  6. EVISTA [Concomitant]
  7. LORAZEPAM [Concomitant]
  8. ACETYLSALICYLIC ACID [Concomitant]
  9. CALCIUM [Concomitant]
  10. SULFASALAZINE [Concomitant]
  11. PULMICORT [Concomitant]
  12. DUONEB [Concomitant]
  13. ALBUTEROL [Concomitant]

REACTIONS (2)
  - APHONIA [None]
  - RASH PRURITIC [None]
